FAERS Safety Report 4389202-0 (Version None)
Quarter: 2004Q2

REPORT INFORMATION
  Report Type: 
  Country: None (occurrence: None)
  Receive Date: 20040628
  Receipt Date: 20040614
  Transmission Date: 20050107
  Serious: Yes (Hospitalization)
  Sender: FDA-Public Use
  Company Number: 199768

PATIENT
  Age: 67 Year
  Sex: Female
  Weight: 58.9676 kg

DRUGS (16)
  1. AVONEX [Suspect]
     Indication: MULTIPLE SCLEROSIS
     Dosage: 30 MCG QW IM
     Route: 030
     Dates: start: 20000101, end: 20030901
  2. AVONEX [Suspect]
     Indication: MULTIPLE SCLEROSIS
     Dosage: 30 MCG QW IM
     Route: 030
     Dates: start: 20030901, end: 20040101
  3. AVONEX [Suspect]
     Indication: MULTIPLE SCLEROSIS
     Dosage: 30 MCG QW IM
     Route: 030
     Dates: start: 20040101
  4. SYNTHROID [Concomitant]
  5. TRIAMTERENE [Concomitant]
  6. CALCIUM [Concomitant]
  7. ACTONEL [Concomitant]
  8. ENULOSE [Concomitant]
  9. EFFEXOR [Concomitant]
  10. K-DUR 10 [Concomitant]
  11. INDERAL [Concomitant]
  12. MULTI-VITAMINS [Concomitant]
  13. CLONAZEPAM [Concomitant]
  14. VITAMIN E [Concomitant]
  15. PREDNISONE EYE DROPS [Concomitant]
  16. SENNA [Concomitant]

REACTIONS (9)
  - EXOSTOSIS [None]
  - HEART RATE INCREASED [None]
  - INTERNATIONAL NORMALISED RATIO INCREASED [None]
  - MIGRAINE [None]
  - NASOPHARYNGITIS [None]
  - OEDEMA PERIPHERAL [None]
  - PNEUMONIA [None]
  - PULMONARY EMBOLISM [None]
  - RHEUMATOID ARTHRITIS [None]
